FAERS Safety Report 19933391 (Version 1)
Quarter: 2021Q4

REPORT INFORMATION
  Report Type: Spontaneous
  Country: US (occurrence: US)
  Receive Date: 20211005
  Receipt Date: 20211005
  Transmission Date: 20220303
  Serious: Yes (Other)
  Sender: FDA-Public Use
  Company Number: None

PATIENT
  Age: 64 Year
  Sex: Female
  Weight: 62.6 kg

DRUGS (10)
  1. METOPROLOL TARTRATE [Suspect]
     Active Substance: METOPROLOL TARTRATE
     Indication: Atrial tachycardia
     Dosage: ?          QUANTITY:1 DF DOSAGE FORM;
     Route: 048
     Dates: start: 20210707, end: 20210922
  2. RESTASIS [Concomitant]
     Active Substance: CYCLOSPORINE
  3. ATORVASTATIN [Concomitant]
     Active Substance: ATORVASTATIN
  4. TACROLIMUS [Concomitant]
     Active Substance: TACROLIMUS
  5. PHRENLIN [Concomitant]
  6. LEVOTHYROXINE [Concomitant]
     Active Substance: LEVOTHYROXINE
  7. TYLENOL EXTRA STRENGTH [Concomitant]
     Active Substance: ACETAMINOPHEN
  8. VITAMINS [Concomitant]
     Active Substance: VITAMINS
  9. FISH OIL [Concomitant]
     Active Substance: FISH OIL
  10. ALLIGN PROBIOTIC [Concomitant]

REACTIONS (3)
  - Cardiac flutter [None]
  - Fatigue [None]
  - Product substitution issue [None]

NARRATIVE: CASE EVENT DATE: 20210707
